FAERS Safety Report 18571344 (Version 1)
Quarter: 2020Q4

REPORT INFORMATION
  Report Type: Spontaneous
  Country: US (occurrence: US)
  Receive Date: 20201202
  Receipt Date: 20201202
  Transmission Date: 20210114
  Serious: Yes (Death, Other)
  Sender: FDA-Public Use
  Company Number: US-ALLERGAN-2046411US

PATIENT
  Sex: Female

DRUGS (1)
  1. NORCO [Suspect]
     Active Substance: ACETAMINOPHEN\HYDROCODONE BITARTRATE
     Indication: MIGRAINE
     Dosage: UNK
     Dates: start: 1980

REACTIONS (5)
  - Incorrect dose administered [Unknown]
  - Withdrawal syndrome [Unknown]
  - Drug dependence [Unknown]
  - Death [Fatal]
  - Pain [Unknown]
